FAERS Safety Report 4838173-9 (Version None)
Quarter: 2005Q4

REPORT INFORMATION
  Report Type: 
  Country: None (occurrence: None)
  Receive Date: 20051128
  Receipt Date: 20051118
  Transmission Date: 20060501
  Serious: Yes (Hospitalization, Other)
  Sender: FDA-Public Use
  Company Number: US-ABBOTT-05P-163-0317656-00

PATIENT
  Age: 54 Year
  Sex: Male

DRUGS (4)
  1. VICODIN [Suspect]
     Indication: HERNIA PAIN
     Route: 048
     Dates: start: 20051018, end: 20051018
  2. LORINZOPRIL [Concomitant]
     Indication: BLOOD PRESSURE
     Route: 048
     Dates: end: 20051001
  3. IRBESARTAN [Concomitant]
     Indication: BLOOD PRESSURE
     Route: 048
  4. ACETYLSALICYLIC ACID [Concomitant]
     Indication: THROMBOSIS PROPHYLAXIS
     Route: 048

REACTIONS (4)
  - CONVULSION [None]
  - DIZZINESS [None]
  - LOSS OF CONSCIOUSNESS [None]
  - SPINAL FRACTURE [None]
